FAERS Safety Report 5968132-4 (Version None)
Quarter: 2008Q4

REPORT INFORMATION
  Report Type: 
  Country: None (occurrence: None)
  Receive Date: 20081126
  Receipt Date: 20081119
  Transmission Date: 20090506
  Serious: Yes (Other)
  Sender: FDA-Public Use
  Company Number: FR-B.I. PHARMACEUTICALS,INC./RIDGEFIELD-2008-DE-07067GD

PATIENT
  Age: 3 Year
  Sex: Female

DRUGS (8)
  1. NEVIRAPINE [Suspect]
     Indication: HUMAN IMMUNODEFICIENCY VIRUS TRANSMISSION
  2. NEVIRAPINE [Suspect]
     Indication: PROPHYLAXIS
  3. DIDANOSINE [Suspect]
     Indication: HUMAN IMMUNODEFICIENCY VIRUS TRANSMISSION
     Route: 064
  4. DIDANOSINE [Suspect]
     Indication: PROPHYLAXIS
  5. LAMIVUDINE [Suspect]
     Indication: HUMAN IMMUNODEFICIENCY VIRUS TRANSMISSION
     Route: 064
  6. LAMIVUDINE [Suspect]
     Indication: PROPHYLAXIS
  7. RITONAVIR [Suspect]
     Indication: HUMAN IMMUNODEFICIENCY VIRUS TRANSMISSION
     Route: 064
  8. RITONAVIR [Suspect]
     Indication: PROPHYLAXIS

REACTIONS (1)
  - RETINOBLASTOMA UNILATERAL [None]
